FAERS Safety Report 6752474-9 (Version None)
Quarter: 2010Q2

REPORT INFORMATION
  Report Type: 
  Country: None (occurrence: None)
  Receive Date: 20100601
  Receipt Date: 20100601
  Transmission Date: 20101027
  Serious: Yes (Hospitalization)
  Sender: FDA-Public Use
  Company Number: None

PATIENT
  Age: 40 Year
  Sex: Female
  Weight: 68.0396 kg

DRUGS (1)
  1. SIMPONI [Suspect]
     Indication: ARTHRITIS
     Dosage: 1 INJECTION MONTHLY SQ
     Route: 058
     Dates: start: 20091101, end: 20100301

REACTIONS (9)
  - AMNESIA [None]
  - CONSCIOUSNESS FLUCTUATING [None]
  - DELIRIUM [None]
  - FATIGUE [None]
  - GENERAL PHYSICAL HEALTH DETERIORATION [None]
  - HYPERHIDROSIS [None]
  - LETHARGY [None]
  - PYREXIA [None]
  - VOMITING [None]
